FAERS Safety Report 12357166 (Version 1)
Quarter: 2016Q2

REPORT INFORMATION
  Report Type: Spontaneous
  Country: CZ (occurrence: CZ)
  Receive Date: 20160511
  Receipt Date: 20160511
  Transmission Date: 20160815
  Serious: Yes (Other)
  Sender: FDA-Public Use
  Company Number: PHHY2016CZ062734

PATIENT
  Age: 62 Year
  Sex: Male
  Weight: 117 kg

DRUGS (2)
  1. VOTRIENT [Suspect]
     Active Substance: PAZOPANIB HYDROCHLORIDE
     Indication: CLEAR CELL RENAL CELL CARCINOMA
     Dosage: 800 MG, QD
     Route: 065
     Dates: start: 201110, end: 201310
  2. TRIASYN [Concomitant]
     Indication: HYPERTENSION
     Route: 065

REACTIONS (5)
  - Weight decreased [Unknown]
  - Haematuria [Unknown]
  - Malignant neoplasm progression [Unknown]
  - Urinary retention [Unknown]
  - Dry skin [Unknown]

NARRATIVE: CASE EVENT DATE: 201310
